FAERS Safety Report 21314240 (Version 1)
Quarter: 2022Q3

REPORT INFORMATION
  Report Type: Spontaneous
  Country: US (occurrence: None)
  Receive Date: 20220909
  Receipt Date: 20220909
  Transmission Date: 20221027
  Serious: No
  Sender: FDA-Public Use
  Company Number: US-ARIS GLOBAL-202109-1676

PATIENT
  Age: 60 Year
  Sex: Female

DRUGS (10)
  1. OXERVATE [Suspect]
     Active Substance: CENEGERMIN-BKBJ
     Indication: Neurotrophic keratopathy
     Route: 047
     Dates: start: 20210913
  2. REFRESH CLASSIC [Concomitant]
     Active Substance: POLYVINYL ALCOHOL\POVIDONE
  3. CEQUA [Concomitant]
     Active Substance: CYCLOSPORINE
     Dates: start: 20201204
  4. HYDROXYCHLOROQUINE SULFATE [Concomitant]
     Active Substance: HYDROXYCHLOROQUINE SULFATE
  5. PILOCARPINE HYDROCHLORIDE [Concomitant]
     Active Substance: PILOCARPINE HYDROCHLORIDE
  6. LOTEMAX [Concomitant]
     Active Substance: LOTEPREDNOL ETABONATE
  7. ESTRADIOL [Concomitant]
     Active Substance: ESTRADIOL
  8. LUNESTA [Concomitant]
     Active Substance: ESZOPICLONE
  9. AUTOLOGUS SERUM TEARS [Concomitant]
     Dates: start: 202101
  10. LOTEMAX [Concomitant]
     Active Substance: LOTEPREDNOL ETABONATE
     Dosage: AT NIGHT
     Dates: start: 20201204

REACTIONS (7)
  - Eye pain [Not Recovered/Not Resolved]
  - Eyelid pain [Not Recovered/Not Resolved]
  - Photophobia [Unknown]
  - Foreign body sensation in eyes [Unknown]
  - Periorbital pain [Unknown]
  - Ocular discomfort [Recovering/Resolving]
  - Eye irritation [Unknown]

NARRATIVE: CASE EVENT DATE: 20210916
